FAERS Safety Report 4786764-6 (Version None)
Quarter: 2005Q3

REPORT INFORMATION
  Report Type: 
  Country: None (occurrence: None)
  Receive Date: 20050930
  Receipt Date: 20050922
  Transmission Date: 20060218
  Serious: Yes (Hospitalization)
  Sender: FDA-Public Use
  Company Number: US-SHR-03-008054

PATIENT
  Age: 60 Year
  Sex: Female
  Weight: 77.1 kg

DRUGS (15)
  1. BETASERON [Suspect]
     Indication: MULTIPLE SCLEROSIS
     Dosage: 8 MIU, EVERY 2D, SUBCUTANEOUS
     Route: 058
     Dates: start: 19980820
  2. COPAXONE [Concomitant]
  3. CIPRO [Concomitant]
  4. NEURONTIN [Concomitant]
  5. TYLENOL (CAPLET) [Concomitant]
  6. TYLENOL PM (DIPHENHYDRAMINE) [Concomitant]
  7. FOLIC ACID [Concomitant]
  8. MULTIPLE VITAMINS (RETINOL) [Concomitant]
  9. POTASSIUM (POTASSIUM) [Concomitant]
  10. ACETYLSALICYLIC ACID SRT [Concomitant]
  11. CARVEDILOL [Concomitant]
  12. COZAAR [Concomitant]
  13. CALCIUM CITRATE (CALCIUM CITRATE) [Concomitant]
  14. LOTENSIN [Concomitant]
  15. DETROL [Concomitant]

REACTIONS (12)
  - ATELECTASIS [None]
  - CARDIOMEGALY [None]
  - CEREBROVASCULAR ACCIDENT [None]
  - CORONARY ARTERY OCCLUSION [None]
  - FUNGAL INFECTION [None]
  - GASTROENTERITIS [None]
  - HYPOGLYCAEMIA [None]
  - ISCHAEMIC CARDIOMYOPATHY [None]
  - LOBAR PNEUMONIA [None]
  - MYOCARDIAL INFARCTION [None]
  - ORAL INTAKE REDUCED [None]
  - URINARY TRACT INFECTION [None]
